FAERS Safety Report 11633019 (Version 6)
Quarter: 2018Q3

REPORT INFORMATION
  Report Type: Report from Study
  Country: US (occurrence: US)
  Receive Date: 20151015
  Receipt Date: 20180831
  Transmission Date: 20181010
  Serious: Yes (Hospitalization, Other)
  Sender: FDA-Public Use
  Company Number: US-ACTELION-A-NJ2015-125408

PATIENT
  Age: 70 Year
  Sex: Female

DRUGS (2)
  1. DILTIAZEM. [Concomitant]
     Active Substance: DILTIAZEM
  2. OPSUMIT [Suspect]
     Active Substance: MACITENTAN
     Indication: PULMONARY ARTERIAL HYPERTENSION
     Dosage: 10 MG, QD
     Route: 048
     Dates: start: 20150626

REACTIONS (7)
  - Cardiac operation [Unknown]
  - Hypotension [Unknown]
  - Myocardial infarction [Unknown]
  - Arteriovenous fistula thrombosis [Unknown]
  - Dialysis [Unknown]
  - Cardiac pacemaker insertion [Unknown]
  - Endocarditis [Unknown]
